FAERS Safety Report 5765965-4 (Version None)
Quarter: 2008Q2

REPORT INFORMATION
  Report Type: 
  Country: None (occurrence: None)
  Receive Date: 20080611
  Receipt Date: 20080228
  Transmission Date: 20081010
  Serious: No
  Sender: FDA-Public Use
  Company Number: US-BRISTOL-MYERS SQUIBB COMPANY-14096069

PATIENT
  Age: 75 Year
  Sex: Female
  Weight: 59 kg

DRUGS (4)
  1. SINEMET [Suspect]
     Indication: PARKINSON'S DISEASE
  2. CARBIDOPA AND LEVODOPA [Suspect]
  3. COMTAN [Concomitant]
  4. NEUPRO [Concomitant]

REACTIONS (1)
  - MUSCLE SPASMS [None]
